FAERS Safety Report 6845530-8 (Version None)
Quarter: 2010Q3

REPORT INFORMATION
  Report Type: 
  Country: None (occurrence: None)
  Receive Date: 20100715
  Receipt Date: 20100702
  Transmission Date: 20110219
  Serious: Yes (Other)
  Sender: FDA-Public Use
  Company Number: PHHY2009CA28499

PATIENT
  Sex: Female

DRUGS (4)
  1. EXJADE [Suspect]
     Indication: MYELODYSPLASTIC SYNDROME
     Dosage: 1000 MG DAILY
     Route: 048
     Dates: start: 20090601
  2. FOSAVANCE [Concomitant]
  3. MULTI-VITAMIN [Concomitant]
  4. CALCIUM WITH VITAMIN D [Concomitant]

REACTIONS (14)
  - ABDOMINAL DISTENSION [None]
  - ABNORMAL FAECES [None]
  - ARTHROPATHY [None]
  - CONSTIPATION [None]
  - DIARRHOEA [None]
  - FALL [None]
  - FLATULENCE [None]
  - FREQUENT BOWEL MOVEMENTS [None]
  - HAEMOGLOBIN DECREASED [None]
  - HEADACHE [None]
  - LUMBAR SPINAL STENOSIS [None]
  - LUMBAR VERTEBRAL FRACTURE [None]
  - THROAT IRRITATION [None]
  - URINARY TRACT INFECTION [None]
